FAERS Safety Report 9698950 (Version 3)
Quarter: 2013Q4

REPORT INFORMATION
  Report Type: Spontaneous
  Country: GB (occurrence: GB)
  Receive Date: 20131120
  Receipt Date: 20131127
  Transmission Date: 20140711
  Serious: Yes (Other)
  Sender: FDA-Public Use
  Company Number: CHNY2013GB002459

PATIENT
  Sex: 0

DRUGS (11)
  1. LAMISIL [Suspect]
     Indication: RASH
     Dosage: UNK, PRN
     Route: 061
     Dates: start: 201308, end: 201308
  2. LAMISIL [Suspect]
     Indication: ONYCHOMYCOSIS
     Dosage: 1 DF, QD
     Route: 048
     Dates: start: 201208, end: 201303
  3. LAMISIL [Suspect]
     Indication: ONYCHOMYCOSIS
  4. LAMISIL [Suspect]
     Indication: RASH
  5. LAMISIL [Suspect]
     Indication: OFF LABEL USE
  6. LAMISIL [Suspect]
     Indication: SYSTEMIC MYCOSIS
  7. LAMISIL [Suspect]
     Indication: SYSTEMIC MYCOSIS
     Dosage: 1 DF, QD
     Route: 048
     Dates: start: 20120921, end: 201303
  8. LACIDIPINE [Concomitant]
     Indication: HYPERTENSION
     Dosage: UNK, UNK
     Route: 065
  9. EZETIMIBE [Concomitant]
     Indication: BLOOD CHOLESTEROL INCREASED
     Dosage: UNK, UNK
     Route: 065
  10. GLUCOSAMINE [Concomitant]
     Dosage: UNK, UNK
     Route: 065
  11. CETIRIZINE [Concomitant]
     Indication: PRURITUS

REACTIONS (4)
  - Syncope [Recovered/Resolved]
  - Diverticulitis [Recovered/Resolved]
  - Hypersensitivity [Recovered/Resolved]
  - Abdominal pain upper [Recovered/Resolved]
